FAERS Safety Report 16055802 (Version 1)
Quarter: 2019Q2

REPORT INFORMATION
  Report Type: Spontaneous
  Country: US (occurrence: US)
  Receive Date: 20190308
  Receipt Date: 20190308
  Transmission Date: 20190711
  Serious: Yes (Life-Threatening)
  Sender: FDA-Public Use
  Company Number: None

PATIENT
  Age: 21 Year
  Sex: Female
  Weight: 82.3 kg

DRUGS (1)
  1. EMGALITY [Suspect]
     Active Substance: GALCANEZUMAB-GNLM
     Indication: MIGRAINE PROPHYLAXIS
     Dosage: ?          OTHER FREQUENCY:MONTHLY;?
     Route: 058
     Dates: start: 20190308, end: 20190308

REACTIONS (6)
  - Anaphylactic reaction [None]
  - Paraesthesia [None]
  - Urticaria [None]
  - Tachycardia [None]
  - Peripheral swelling [None]
  - Tachypnoea [None]

NARRATIVE: CASE EVENT DATE: 20190308
